FAERS Safety Report 10085270 (Version 1)
Quarter: 2014Q2

REPORT INFORMATION
  Report Type: Spontaneous
  Country: US (occurrence: US)
  Receive Date: 20140417
  Receipt Date: 20140417
  Transmission Date: 20141212
  Serious: Yes (Death, Other)
  Sender: FDA-Public Use
  Company Number: US-GILEAD-2014-0099959

PATIENT
  Age: 41 Year
  Sex: Male

DRUGS (1)
  1. LETAIRIS [Suspect]
     Indication: CARDIAC DISORDER
     Dosage: 5 MG, QD
     Route: 065
     Dates: start: 20140207, end: 20140328

REACTIONS (2)
  - Cardiac disorder [Fatal]
  - Renal failure [Fatal]
